FAERS Safety Report 17943761 (Version 1)
Quarter: 2020Q2

REPORT INFORMATION
  Report Type: Spontaneous
  Country: CA (occurrence: CA)
  Receive Date: 20200625
  Receipt Date: 20200625
  Transmission Date: 20200714
  Serious: Yes (Hospitalization, Other)
  Sender: FDA-Public Use
  Company Number: CA-TEVA-2020-CA-1792684

PATIENT
  Age: 17 Year
  Sex: Female

DRUGS (4)
  1. PARA-AMINOSALICYLIC ACID [Suspect]
     Active Substance: AMINOSALICYLIC ACID
     Indication: PRODUCT USED FOR UNKNOWN INDICATION
     Route: 065
  2. MINOCYCLINE HYDROCHLORIDE. [Suspect]
     Active Substance: MINOCYCLINE HYDROCHLORIDE
     Indication: ACNE PUSTULAR
     Dosage: 100 MILLIGRAM DAILY;
     Route: 048
  3. MINOCYCLINE HYDROCHLORIDE. [Suspect]
     Active Substance: MINOCYCLINE HYDROCHLORIDE
     Indication: ACNE
  4. ACETAMINOPHEN. [Suspect]
     Active Substance: ACETAMINOPHEN
     Indication: PRODUCT USED FOR UNKNOWN INDICATION
     Route: 065

REACTIONS (12)
  - Pyrexia [Recovered/Resolved]
  - Lymphocytosis [Recovered/Resolved]
  - Drug-induced liver injury [Recovered/Resolved]
  - Lymphadenopathy [Recovered/Resolved]
  - Rash vesicular [Recovered/Resolved]
  - Transaminases increased [Recovered/Resolved]
  - Eosinophilia [Recovered/Resolved]
  - Dermatitis [Recovered/Resolved]
  - Leukocytosis [Recovered/Resolved]
  - Rash macular [Recovered/Resolved]
  - Drug ineffective [Recovered/Resolved]
  - Hepatitis [Recovered/Resolved]
